FAERS Safety Report 7707093-4 (Version None)
Quarter: 2011Q3

REPORT INFORMATION
  Report Type: 
  Country: None (occurrence: None)
  Receive Date: 20110824
  Receipt Date: 20110818
  Transmission Date: 20111222
  Serious: Yes (Other)
  Sender: FDA-Public Use
  Company Number: US-PFIZER INC-2007036865

PATIENT
  Sex: Female

DRUGS (1)
  1. NEURONTIN [Suspect]
     Indication: ARTHRITIS
     Dosage: 100MG TO 600MG, UNK
     Dates: start: 20020101, end: 20040101

REACTIONS (5)
  - CONFUSIONAL STATE [None]
  - CEREBROVASCULAR ACCIDENT [None]
  - AMNESIA [None]
  - AGGRESSION [None]
  - DEPRESSION [None]
